FAERS Safety Report 14671101 (Version 3)
Quarter: 2018Q3

REPORT INFORMATION
  Report Type: Report from Study
  Country: AU (occurrence: AU)
  Receive Date: 20180322
  Receipt Date: 20180705
  Transmission Date: 20181010
  Serious: Yes (Hospitalization)
  Sender: FDA-Public Use
  Company Number: AU-EXELIXIS-XL18418013003

PATIENT
  Age: 41 Year
  Sex: Male
  Weight: 82 kg

DRUGS (10)
  1. PANTOPRAZOLE [Concomitant]
     Active Substance: PANTOPRAZOLE
  2. NIVOLUMAB [Suspect]
     Active Substance: NIVOLUMAB
     Indication: RENAL CELL CARCINOMA
     Dosage: 247 MG, UNK
     Route: 042
     Dates: start: 20180131
  3. BETAMETHASONE. [Concomitant]
     Active Substance: BETAMETHASONE
  4. METHYLPREDNISOLONE. [Concomitant]
     Active Substance: METHYLPREDNISOLONE
  5. IPILIMUMAB [Suspect]
     Active Substance: IPILIMUMAB
     Indication: RENAL CELL CARCINOMA
     Dosage: 83 MG, UNK
     Route: 042
     Dates: start: 20180131
  6. IBUPROFEN. [Concomitant]
     Active Substance: IBUPROFEN
  7. CABOZANTINIB [Suspect]
     Active Substance: CABOZANTINIB
     Indication: RENAL CELL CARCINOMA
     Dosage: 40 MG, QD
     Route: 048
     Dates: start: 20180131
  8. PARACETAMOL [Concomitant]
     Active Substance: ACETAMINOPHEN
  9. PREDNISOLONE. [Concomitant]
     Active Substance: PREDNISOLONE
  10. ACYCLOVIR. [Concomitant]
     Active Substance: ACYCLOVIR

REACTIONS (1)
  - Hepatitis [Recovered/Resolved]

NARRATIVE: CASE EVENT DATE: 20180223
